FAERS Safety Report 24165005 (Version 1)
Quarter: 2024Q3

REPORT INFORMATION
  Report Type: Report from Study
  Country: CA (occurrence: CA)
  Receive Date: 20240802
  Receipt Date: 20240802
  Transmission Date: 20241016
  Serious: Yes (Hospitalization)
  Sender: ABBVIE
  Company Number: CA-ABBVIE-5856403

PATIENT
  Age: 79 Year
  Sex: Female

DRUGS (2)
  1. RINVOQ [Suspect]
     Active Substance: UPADACITINIB
     Indication: Rheumatoid arthritis
     Dosage: FORM STRENGTH: 15 MG
     Route: 048
     Dates: start: 20220508
  2. GABAPENTIN [Concomitant]
     Active Substance: GABAPENTIN
     Indication: Product used for unknown indication
     Dosage: TIME INTERVAL: 0.16666667 DAYS
     Route: 065

REACTIONS (9)
  - Cystitis [Unknown]
  - Abdominal rigidity [Unknown]
  - Dizziness postural [Unknown]
  - Haemoglobin decreased [Unknown]
  - Weight decreased [Unknown]
  - Appetite disorder [Unknown]
  - Pain [Unknown]
  - Inflammation [Unknown]
  - Lung disorder [Unknown]

NARRATIVE: CASE EVENT DATE: 20220101
